FAERS Safety Report 14149128 (Version 1)
Quarter: 2017Q4

REPORT INFORMATION
  Report Type: Spontaneous
  Country: ES (occurrence: ES)
  Receive Date: 20171101
  Receipt Date: 20171101
  Transmission Date: 20180321
  Serious: Yes (Hospitalization)
  Sender: FDA-Public Use
  Company Number: ES-PFIZER INC-2017470149

PATIENT
  Age: 35 Year
  Sex: Male

DRUGS (5)
  1. VANCOMICINA PFIZER [Suspect]
     Active Substance: VANCOMYCIN HYDROCHLORIDE
     Indication: CLOSTRIDIUM DIFFICILE INFECTION
     Dosage: 0.5 G, 4X/DAY
     Route: 042
     Dates: start: 20161114, end: 20161121
  2. TRIUMEQ [Concomitant]
     Active Substance: ABACAVIR SULFATE\DOLUTEGRAVIR SODIUM\LAMIVUDINE
     Indication: ACQUIRED IMMUNODEFICIENCY SYNDROME
     Dosage: 1 DF, 1X/DAY
     Route: 048
     Dates: start: 20161102
  3. METRONIDAZOL G.E.S. [Suspect]
     Active Substance: METRONIDAZOLE
     Indication: ABDOMINAL PAIN
     Dosage: 2 G, 3X/DAY
     Route: 042
     Dates: start: 20161113, end: 20161124
  4. CEFTRIAXONA REIG JOFRE [Suspect]
     Active Substance: CEFTRIAXONE SODIUM
     Indication: ABDOMINAL PAIN
     Dosage: 1 G, 1X/DAY
     Route: 042
     Dates: start: 20161113, end: 20161117
  5. AMPHOTERICIN B. [Suspect]
     Active Substance: AMPHOTERICIN B
     Indication: HISTOPLASMOSIS
     Dosage: 200 MG, 1X/DAY
     Route: 048
     Dates: start: 20161111, end: 20161128

REACTIONS (1)
  - Haemolytic anaemia [Recovered/Resolved]

NARRATIVE: CASE EVENT DATE: 20161117
